FAERS Safety Report 6517160-9 (Version None)
Quarter: 2009Q4

REPORT INFORMATION
  Report Type: 
  Country: None (occurrence: None)
  Receive Date: 20091223
  Receipt Date: 20091222
  Transmission Date: 20100525
  Serious: Yes (Death)
  Sender: FDA-Public Use
  Company Number: DE-ABBOTT-09P-062-0615905-00

PATIENT
  Sex: Male
  Weight: 70 kg

DRUGS (6)
  1. KALETRA [Suspect]
     Indication: HIV INFECTION
     Dates: start: 20080402
  2. TRUVADA [Concomitant]
     Indication: HIV INFECTION
     Route: 048
     Dates: start: 20080402
  3. OLANZAPINE [Concomitant]
     Indication: MENTAL DISORDER
     Dates: start: 20070714
  4. PERPHENAZINE [Concomitant]
     Indication: MENTAL DISORDER
     Dates: start: 20071221
  5. CHLORPROTHIXEN [Concomitant]
     Indication: MENTAL DISORDER
     Dates: start: 20071221
  6. CLOBAZAM [Concomitant]
     Indication: MENTAL DISORDER
     Dates: start: 20071221

REACTIONS (1)
  - COMPLETED SUICIDE [None]
